FAERS Safety Report 9812637 (Version 1)
Quarter: 2014Q1

REPORT INFORMATION
  Report Type: Spontaneous
  Country: IT (occurrence: IT)
  Receive Date: 20140113
  Receipt Date: 20140113
  Transmission Date: 20141002
  Serious: Yes (Death, Other)
  Sender: FDA-Public Use
  Company Number: IT-TEVA-453969ISR

PATIENT
  Age: 89 Year
  Sex: Female

DRUGS (14)
  1. TICLOPIDINE HYDROCHLORIDE [Suspect]
     Indication: THROMBOSIS PROPHYLAXIS
     Dosage: 500 MILLIGRAM DAILY;
     Route: 048
     Dates: start: 20120101, end: 20130424
  2. TORA-DOL [Suspect]
     Indication: PAIN
     Dosage: 1 DOSAGE FORMS DAILY;
     Route: 042
     Dates: start: 20130425, end: 20130427
  3. TORA-DOL [Suspect]
     Indication: PAIN
     Dosage: 1 DOSAGE FORMS DAILY;
     Route: 042
     Dates: start: 20130501, end: 20130504
  4. CLEXANE [Suspect]
     Indication: THROMBOSIS PROPHYLAXIS
     Dosage: 1 DOSAGE FORMS DAILY;
     Route: 058
     Dates: start: 20130424, end: 20130505
  5. TAVANIC - 500 MG SOLUZIONE PER INFUSIONE [Concomitant]
     Indication: URINARY TRACT INFECTION
     Dosage: 1 DOSAGE FORMS DAILY;
     Route: 042
     Dates: start: 20130430, end: 20130506
  6. TRIATEC - 10 MG COMPRESSE [Concomitant]
     Indication: HYPERTENSION
     Dosage: 1 DOSAGE FORMS DAILY;
     Route: 048
  7. ZYLORIC - 300 MG COMPRESSE [Concomitant]
     Indication: PRODUCT USED FOR UNKNOWN INDICATION
     Dosage: .5 DOSAGE FORMS DAILY;
     Route: 048
  8. NOVONORM - 2,0 MG COMPRESSE [Concomitant]
     Indication: DIABETES MELLITUS
     Dates: start: 20130101, end: 20130430
  9. LASIX - 25 MG COMPRESSE [Concomitant]
     Indication: HYPERTENSION
  10. TORVAST - 10 MG COMPRESSE [Concomitant]
     Indication: PRODUCT USED FOR UNKNOWN INDICATION
  11. ROCALTROL - 0,25 MCG CAPSULE MOLLI [Concomitant]
     Indication: OSTEOPOROSIS
     Dosage: CAPSULE, SOFT
  12. HALCION - 125 MCG COMPRESSE [Concomitant]
     Indication: PRODUCT USED FOR UNKNOWN INDICATION
  13. ADALAT - 10 MG CAPSULE MOLLI [Concomitant]
     Indication: PRODUCT USED FOR UNKNOWN INDICATION
     Dosage: CAPSULE, SOFT
  14. BISOPROLOL HEMIFUMARATE [Concomitant]
     Indication: CARDIAC FAILURE
     Dosage: 1.25 MILLIGRAM DAILY;

REACTIONS (5)
  - Anaemia [Fatal]
  - Gastric ulcer haemorrhage [Fatal]
  - Haematemesis [Fatal]
  - Hypotension [Fatal]
  - Melaena [Fatal]
